FAERS Safety Report 23711446 (Version 1)
Quarter: 2024Q2

REPORT INFORMATION
  Report Type: Spontaneous
  Country: JP (occurrence: JP)
  Receive Date: 20240405
  Receipt Date: 20240405
  Transmission Date: 20240716
  Serious: Yes (Death)
  Sender: FDA-Public Use
  Company Number: JP-ELI_LILLY_AND_COMPANY-JP202402001615

PATIENT

DRUGS (1)
  1. OLANZAPINE [Suspect]
     Active Substance: OLANZAPINE

REACTIONS (1)
  - Completed suicide [Fatal]
